FAERS Safety Report 9374061 (Version 1)
Quarter: 2013Q2

REPORT INFORMATION
  Report Type: Spontaneous
  Country: FR (occurrence: FR)
  Receive Date: 20130628
  Receipt Date: 20130628
  Transmission Date: 20140414
  Serious: Yes (Hospitalization)
  Sender: FDA-Public Use
  Company Number: FR-ASTRAZENECA-2013SE48764

PATIENT
  Age: 26500 Day
  Sex: Male
  Weight: 101 kg

DRUGS (12)
  1. INEXIUM [Suspect]
     Route: 048
  2. PLAVIX [Suspect]
     Indication: CORONARY ANGIOPLASTY
     Route: 048
     Dates: start: 20120927, end: 20120927
  3. EFIENT [Suspect]
     Indication: CORONARY ANGIOPLASTY
     Route: 048
     Dates: start: 20120929, end: 20121001
  4. EFIENT [Suspect]
     Indication: CORONARY ANGIOPLASTY
     Route: 048
     Dates: start: 20120928, end: 20120928
  5. INTEGRILIN [Concomitant]
     Dates: start: 20120927, end: 20121001
  6. DUOPLAVIN [Concomitant]
     Dosage: 75 MG CLOPIDOGREL / 75 MG ASA
  7. DETENSIEL [Concomitant]
  8. CRESTOR [Concomitant]
  9. EZETROL [Concomitant]
  10. TRIATEC [Concomitant]
  11. ASPIRINE [Concomitant]
     Dates: start: 20120928
  12. ASPIRINE [Concomitant]
     Dates: start: 20120927, end: 20120927

REACTIONS (2)
  - Device occlusion [Recovered/Resolved]
  - Drug ineffective [Recovered/Resolved]
